FAERS Safety Report 4491402-6 (Version None)
Quarter: 2004Q4

REPORT INFORMATION
  Report Type: 
  Country: None (occurrence: None)
  Receive Date: 20041101
  Receipt Date: 20041101
  Transmission Date: 20050328
  Serious: Yes (Disabling, Other)
  Sender: FDA-Public Use
  Company Number: None

PATIENT
  Age: 55 Year
  Sex: Female
  Weight: 58.9676 kg

DRUGS (3)
  1. AVONEX [Suspect]
     Indication: NERVOUS SYSTEM DISORDER
     Dosage: X1 INJECTION EVERY WEEK
     Dates: start: 20020701, end: 20030701
  2. SYNTHROID [Concomitant]
  3. LEVOXYL [Concomitant]

REACTIONS (11)
  - AMNESIA [None]
  - COGNITIVE DISORDER [None]
  - CONDITION AGGRAVATED [None]
  - FALL [None]
  - FOOD ALLERGY [None]
  - HEADACHE [None]
  - HYPOAESTHESIA ORAL [None]
  - HYPOTHYROIDISM [None]
  - INTRACRANIAL PRESSURE INCREASED [None]
  - NERVOUS SYSTEM DISORDER [None]
  - NUCLEAR MAGNETIC RESONANCE IMAGING ABNORMAL [None]
